FAERS Safety Report 10748146 (Version 1)
Quarter: 2015Q1

REPORT INFORMATION
  Report Type: Spontaneous
  Country: JP (occurrence: JP)
  Receive Date: 20150129
  Receipt Date: 20150129
  Transmission Date: 20150721
  Serious: Yes (Other)
  Sender: FDA-Public Use
  Company Number: JP-BAYER-2015-013266

PATIENT
  Sex: Female

DRUGS (1)
  1. YAZ [Suspect]
     Active Substance: DROSPIRENONE\ETHINYL ESTRADIOL
     Dosage: UNK
     Route: 048
     Dates: start: 2013, end: 201404

REACTIONS (4)
  - Thyroid cancer [None]
  - Dysarthria [None]
  - Speech disorder [None]
  - Thirst [None]

NARRATIVE: CASE EVENT DATE: 2014
